FAERS Safety Report 7657590-5 (Version None)
Quarter: 2011Q3

REPORT INFORMATION
  Report Type: 
  Country: None (occurrence: None)
  Receive Date: 20110804
  Receipt Date: 20110726
  Transmission Date: 20111222
  Serious: Yes (Hospitalization)
  Sender: FDA-Public Use
  Company Number: JP-AMGEN-JPNCT2011037297

PATIENT
  Age: 74 Year
  Sex: Female
  Weight: 38 kg

DRUGS (3)
  1. CALCICHEW D3 [Concomitant]
     Indication: OSTEOPOROSIS
     Route: 048
     Dates: start: 20100930
  2. DENOSUMAB [Suspect]
     Indication: OSTEOPOROSIS
     Dosage: UNK, Q6MO
     Route: 058
     Dates: start: 20100729
  3. KAIGEN [Concomitant]
     Indication: NASOPHARYNGITIS
     Dosage: AS NEEDED
     Route: 048
     Dates: start: 20110627

REACTIONS (1)
  - PNEUMOTHORAX [None]
